FAERS Safety Report 21919675 (Version 7)
Quarter: 2024Q1

REPORT INFORMATION
  Report Type: Report from Study
  Country: KR (occurrence: KR)
  Receive Date: 20230127
  Receipt Date: 20240228
  Transmission Date: 20240410
  Serious: Yes (Hospitalization, Other)
  Sender: FDA-Public Use
  Company Number: KR-GLAXOSMITHKLINE-KR2023GSK010592

PATIENT

DRUGS (16)
  1. BELIMUMAB [Suspect]
     Active Substance: BELIMUMAB
     Indication: Systemic lupus erythematosus
     Dosage: 800
     Route: 042
     Dates: start: 20221101
  2. BELIMUMAB [Suspect]
     Active Substance: BELIMUMAB
     Indication: Nephritis
     Dosage: 800
     Route: 042
     Dates: start: 20221117
  3. BELIMUMAB [Suspect]
     Active Substance: BELIMUMAB
     Indication: Lupus nephritis
     Dosage: 720
     Route: 042
     Dates: start: 20221216
  4. BELIMUMAB [Suspect]
     Active Substance: BELIMUMAB
     Dosage: UNK
     Route: 042
     Dates: start: 20230120
  5. METHYLPREDNISOLONE SODIUM SUCCINATE [Concomitant]
     Active Substance: METHYLPREDNISOLONE SODIUM SUCCINATE
     Indication: Product used for unknown indication
     Dosage: 125 MG, ONCE
     Route: 042
     Dates: start: 20230120, end: 20230120
  6. METHYSOL [Concomitant]
     Indication: Product used for unknown indication
     Dosage: 125 MG
     Route: 042
     Dates: start: 20230120, end: 20230120
  7. PREDNISOLONE [Concomitant]
     Active Substance: PREDNISOLONE
     Indication: Product used for unknown indication
     Dosage: 5 MG, BID
     Route: 048
     Dates: start: 20221101, end: 20221215
  8. PREDNISOLONE [Concomitant]
     Active Substance: PREDNISOLONE
     Dosage: 5 MG
     Route: 048
     Dates: start: 20221216, end: 20221216
  9. PREDNISOLONE [Concomitant]
     Active Substance: PREDNISOLONE
     Dosage: 2.5 MG, QD
     Route: 048
     Dates: start: 20221217, end: 20230105
  10. PREDNISOLONE [Concomitant]
     Active Substance: PREDNISOLONE
     Dosage: 7.5 MG, BID
     Route: 048
     Dates: start: 20230106, end: 20230120
  11. HYDROXYCHLOROQUINE SULFATE [Concomitant]
     Active Substance: HYDROXYCHLOROQUINE SULFATE
     Indication: Product used for unknown indication
     Dosage: 200 MG, QD
     Route: 048
     Dates: start: 20220729, end: 20230125
  12. LASIX [Concomitant]
     Active Substance: FUROSEMIDE
     Indication: Generalised oedema
     Dosage: 20 MG, QD
     Route: 048
     Dates: start: 20221216, end: 20230105
  13. LASIX [Concomitant]
     Active Substance: FUROSEMIDE
     Indication: Oedema peripheral
     Dosage: 60 MG, QD
     Route: 048
     Dates: start: 20230106
  14. LASIX [Concomitant]
     Active Substance: FUROSEMIDE
     Dosage: 20 MG, SINGLE
     Route: 042
     Dates: start: 20230120, end: 20230120
  15. CALTRATE WITH VITAMIN D [Concomitant]
     Active Substance: CALCIUM CARBONATE\CHOLECALCIFEROL
     Indication: Osteoporosis prophylaxis
     Dosage: 1 DF, QD
     Route: 048
     Dates: start: 20220729, end: 20230120
  16. AMOSARTAN [Concomitant]
     Indication: Proteinuria
     Dosage: 1 DF, QD,  5/100
     Route: 048
     Dates: start: 20220729, end: 20230121

REACTIONS (2)
  - Acute kidney injury [Recovering/Resolving]
  - Atypical pneumonia [Recovered/Resolved]

NARRATIVE: CASE EVENT DATE: 20230120
